FAERS Safety Report 9710424 (Version 2)
Quarter: 2013Q4

REPORT INFORMATION
  Report Type: Spontaneous
  Country: US (occurrence: US)
  Receive Date: 20131126
  Receipt Date: 20131126
  Transmission Date: 20140711
  Serious: No
  Sender: FDA-Public Use
  Company Number: US-BRISTOL-MYERS SQUIBB COMPANY-18983197

PATIENT
  Age: 48 Year
  Sex: Female
  Weight: 126.98 kg

DRUGS (5)
  1. BYDUREON [Suspect]
     Indication: TYPE 2 DIABETES MELLITUS
     Dates: start: 201304, end: 201306
  2. METFORMIN HCL [Concomitant]
  3. INSULIN [Concomitant]
  4. HUMULIN R [Concomitant]
  5. KOMBIGLYZE XR [Concomitant]

REACTIONS (2)
  - Nausea [Recovered/Resolved]
  - Vomiting [Recovered/Resolved]
